FAERS Safety Report 7657493-6 (Version None)
Quarter: 2011Q3

REPORT INFORMATION
  Report Type: 
  Country: None (occurrence: None)
  Receive Date: 20110804
  Receipt Date: 20110720
  Transmission Date: 20111222
  Serious: Yes (Other)
  Sender: FDA-Public Use
  Company Number: IT-GENENTECH-318764

PATIENT
  Age: 67 Year
  Sex: Female

DRUGS (4)
  1. RANIBIZUMAB [Suspect]
     Indication: CHOROIDAL NEOVASCULARISATION
     Route: 031
  2. AVASTIN [Suspect]
     Dosage: UNK
     Route: 031
     Dates: start: 20080801
  3. AVASTIN [Suspect]
     Route: 031
  4. AVASTIN [Suspect]
     Indication: PRODUCT USED FOR UNKNOWN INDICATION
     Route: 031

REACTIONS (4)
  - METAMORPHOPSIA [None]
  - DETACHMENT OF MACULAR RETINAL PIGMENT EPITHELIUM [None]
  - RETINAL HAEMORRHAGE [None]
  - CATARACT [None]
